FAERS Safety Report 6698834-6 (Version None)
Quarter: 2010Q2

REPORT INFORMATION
  Report Type: 
  Country: None (occurrence: None)
  Receive Date: 20100427
  Receipt Date: 20100421
  Transmission Date: 20101027
  Serious: Yes (Death, Other)
  Sender: FDA-Public Use
  Company Number: PHHY2010DE26031

PATIENT
  Sex: Male
  Weight: 108 kg

DRUGS (10)
  1. ALISKIREN ALI+ [Suspect]
     Indication: HYPERTENSION
     Dosage: 150 MG/D, UNK
     Route: 048
     Dates: start: 20090401
  2. FORMOTEROL [Suspect]
     Indication: CHRONIC OBSTRUCTIVE PULMONARY DISEASE
     Dosage: 24 MCG/D
     Dates: start: 20060921
  3. GLUCOPHAGE [Concomitant]
     Indication: TYPE 2 DIABETES MELLITUS
     Dosage: UNK
     Route: 048
     Dates: start: 20080410
  4. BISOPROLOL [Concomitant]
     Indication: CORONARY ARTERY DISEASE
     Dosage: 10 MG/D, UNK
     Route: 048
     Dates: start: 20080317
  5. TORSEMIDE [Concomitant]
     Indication: HYPERTENSION
     Dosage: 10 MG/D
     Route: 048
     Dates: start: 20050329
  6. ASPIRIN [Concomitant]
     Indication: CORONARY ARTERY DISEASE
     Dosage: 100 MG/D, UNK
     Route: 048
     Dates: start: 20050329
  7. SIMVASTATIN [Concomitant]
     Indication: HYPERCHOLESTEROLAEMIA
     Dosage: 40 MG/D, UNK
  8. LOSARTAN POTASSIUM [Concomitant]
     Indication: HYPERTENSION
     Dosage: 50 MG/D, UNK
     Dates: start: 20090330
  9. SPIRIVA [Concomitant]
     Indication: CHRONIC OBSTRUCTIVE PULMONARY DISEASE
     Dosage: 18 MCG/D, UNK
     Dates: start: 20060921
  10. THEOPHYLLINE [Concomitant]
     Dosage: 400 MG/D, UNK
     Route: 048
     Dates: start: 20070626

REACTIONS (7)
  - ANGIOGRAM [None]
  - BLOOD GLUCOSE INCREASED [None]
  - BLOOD PRESSURE INCREASED [None]
  - CATHETERISATION CARDIAC [None]
  - CEREBROVASCULAR ACCIDENT [None]
  - DYSPNOEA [None]
  - MYOCARDIAL INFARCTION [None]
